FAERS Safety Report 5565239-0 (Version None)
Quarter: 2007Q4

REPORT INFORMATION
  Report Type: 
  Country: None (occurrence: None)
  Receive Date: 20071218
  Receipt Date: 20071207
  Transmission Date: 20080405
  Serious: Yes (Hospitalization)
  Sender: FDA-Public Use
  Company Number: NL-AMGEN-US256717

PATIENT
  Sex: Female

DRUGS (5)
  1. ENBREL [Suspect]
     Indication: RHEUMATOID ARTHRITIS
     Route: 058
     Dates: start: 20071112
  2. PLAQUENIL [Concomitant]
  3. TEMAZEPAM [Concomitant]
  4. PANTOPRAZOLE SODIUM [Concomitant]
  5. VENTOLIN DISKUS [Concomitant]

REACTIONS (4)
  - ARTHRITIS [None]
  - OEDEMA PERIPHERAL [None]
  - PAIN [None]
  - PYREXIA [None]
